FAERS Safety Report 7775514-7 (Version None)
Quarter: 2011Q3

REPORT INFORMATION
  Report Type: 
  Country: None (occurrence: None)
  Receive Date: 20110923
  Receipt Date: 20101117
  Transmission Date: 20111222
  Serious: Yes (Hospitalization, Other)
  Sender: FDA-Public Use
  Company Number: GB-ROCHE-744489

PATIENT

DRUGS (5)
  1. TACROLIMUS [Suspect]
     Dosage: 0.20MG/KG WITHIN 6 HOURS OF TRANSPLANT--0.05MG/KG/DOSE X BD-DOSE AS PER PROTOCOL
     Route: 065
  2. DACLIZUMAB [Suspect]
     Dosage: AT DAYS 4 AND 18 POST TRANSPLANT- AS PER PROTOCOL
     Route: 065
  3. MYCOPHENOLATE MOFETIL [Suspect]
     Dosage: 20MG/KG/DOSE BD- DOSE AS PER PROTOCOL
     Route: 065
  4. HYDROCORTISONE [Suspect]
     Route: 065
  5. PREDNISOLONE [Suspect]
     Route: 065

REACTIONS (7)
  - LIVER FUNCTION TEST ABNORMAL [None]
  - LIVER TRANSPLANT REJECTION [None]
  - DIABETES MELLITUS [None]
  - INTESTINAL OBSTRUCTION [None]
  - SMALL INTESTINAL RESECTION [None]
  - SURGERY [None]
  - BILIARY ANASTOMOSIS [None]
